FAERS Safety Report 19269735 (Version 1)
Quarter: 2021Q2

REPORT INFORMATION
  Report Type: Spontaneous
  Country: CA (occurrence: CA)
  Receive Date: 20210518
  Receipt Date: 20210518
  Transmission Date: 20210717
  Serious: Yes (Other)
  Sender: FDA-Public Use
  Company Number: CA-INDIVIOR US-INDV-129635-2021

PATIENT

DRUGS (2)
  1. SUBOXONE [Suspect]
     Active Substance: BUPRENORPHINE HYDROCHLORIDE\NALOXONE HYDROCHLORIDE
     Indication: PRODUCT USED FOR UNKNOWN INDICATION
     Dosage: UNK
     Route: 060
  2. BUPRENORPHINE/NALOXONE TABLET GENERIC [Suspect]
     Active Substance: BUPRENORPHINE\NALOXONE
     Indication: DRUG USE DISORDER
     Dosage: 20 MILLIGRAM, QD
     Route: 048

REACTIONS (2)
  - Product substitution issue [Recovered/Resolved]
  - Urticaria [Recovered/Resolved]
